FAERS Safety Report 9363069 (Version 1)
Quarter: 2013Q2

REPORT INFORMATION
  Report Type: Spontaneous
  Country: US (occurrence: US)
  Receive Date: 20130624
  Receipt Date: 20130624
  Transmission Date: 20140414
  Serious: No
  Sender: FDA-Public Use
  Company Number: US-PFIZER INC-2013185737

PATIENT
  Sex: Female

DRUGS (2)
  1. ADVIL [Suspect]
     Indication: HEADACHE
     Dosage: UNK
     Route: 048
  2. ADVIL [Suspect]
     Dosage: 2 TABLETS, AT A TIME
     Dates: start: 20130615

REACTIONS (3)
  - Incorrect dose administered [Unknown]
  - Lip swelling [Unknown]
  - Hypoaesthesia oral [Unknown]
